FAERS Safety Report 13082309 (Version 1)
Quarter: 2017Q1

REPORT INFORMATION
  Report Type: Report from Study
  Country: US (occurrence: US)
  Receive Date: 20170103
  Receipt Date: 20170103
  Transmission Date: 20170428
  Serious: Yes (Hospitalization)
  Sender: FDA-Public Use
  Company Number: US-ACTELION-A-NJ2016-137456

PATIENT
  Age: 62 Year
  Sex: Female

DRUGS (4)
  1. VELETRI [Suspect]
     Active Substance: EPOPROSTENOL
     Indication: PULMONARY HYPERTENSION
     Dosage: 20 NG/KG, PER MIN
     Route: 042
     Dates: start: 20160525
  2. OPSUMIT [Suspect]
     Active Substance: MACITENTAN
     Indication: PULMONARY HYPERTENSION
     Dosage: 10 MG, QD
     Route: 048
     Dates: start: 20150824
  3. ADCIRCA [Concomitant]
     Active Substance: TADALAFIL
  4. BIOPATCH [Concomitant]
     Active Substance: CHLORHEXIDINE GLUCONATE

REACTIONS (24)
  - Gastrointestinal haemorrhage [Unknown]
  - Arteriovenous malformation [Unknown]
  - Vomiting [Unknown]
  - Nasal dryness [Unknown]
  - Unevaluable event [Unknown]
  - Headache [Unknown]
  - Pain in jaw [Recovered/Resolved]
  - Anaemia [Unknown]
  - Catheter site pruritus [Unknown]
  - Eye swelling [Unknown]
  - Cold sweat [Unknown]
  - Flushing [Unknown]
  - Myalgia [Unknown]
  - Dermatitis contact [Unknown]
  - Erythema [Unknown]
  - Diarrhoea [Unknown]
  - Skin burning sensation [Unknown]
  - Pain [Unknown]
  - Rash papular [Unknown]
  - Swelling [Unknown]
  - Chills [Unknown]
  - Nausea [Unknown]
  - Influenza like illness [Unknown]
  - Catheter site erythema [Unknown]

NARRATIVE: CASE EVENT DATE: 20160525
